FAERS Safety Report 21203356 (Version 2)
Quarter: 2022Q4

REPORT INFORMATION
  Report Type: Spontaneous
  Country: US (occurrence: US)
  Receive Date: 20220811
  Receipt Date: 20221008
  Transmission Date: 20230112
  Serious: Yes (Other)
  Sender: FDA-Public Use
  Company Number: US-TEVA-2022-US-2062613

PATIENT
  Age: 51 Year
  Sex: Female

DRUGS (6)
  1. INDOMETHACIN [Suspect]
     Active Substance: INDOMETHACIN
     Indication: SUNA syndrome
     Route: 065
  2. LAMOTRIGINE [Suspect]
     Active Substance: LAMOTRIGINE
     Indication: SUNA syndrome
     Route: 065
  3. GABAPENTIN [Suspect]
     Active Substance: GABAPENTIN
     Indication: SUNA syndrome
     Route: 065
  4. BOTOX [Suspect]
     Active Substance: ONABOTULINUMTOXINA
     Indication: SUNA syndrome
     Route: 065
  5. ERENUMAB [Suspect]
     Active Substance: ERENUMAB
     Indication: SUNA syndrome
     Dosage: EVERY 30 DAYS, 70 MG
     Route: 065
  6. ERENUMAB [Suspect]
     Active Substance: ERENUMAB
     Dosage: DOSE INCREASED, 140 MG
     Route: 065

REACTIONS (2)
  - Therapeutic response shortened [Unknown]
  - Drug ineffective [Unknown]
